FAERS Safety Report 23910054 (Version 2)
Quarter: 2024Q2

REPORT INFORMATION
  Report Type: Spontaneous
  Country: JP (occurrence: JP)
  Receive Date: 20240528
  Receipt Date: 20240621
  Transmission Date: 20240716
  Serious: Yes (Other)
  Sender: FDA-Public Use
  Company Number: JP-UCBJ-CD202404304UCBPHAPROD

PATIENT

DRUGS (1)
  1. VIMPAT [Suspect]
     Active Substance: LACOSAMIDE
     Indication: Product used for unknown indication
     Dosage: UNK
     Route: 048
     Dates: end: 20240514

REACTIONS (1)
  - Bradycardia [Recovered/Resolved]
